FAERS Safety Report 9016158 (Version 3)
Quarter: 2013Q1

REPORT INFORMATION
  Report Type: Report from Study
  Country: CA (occurrence: CA)
  Receive Date: 20130116
  Receipt Date: 20130228
  Transmission Date: 20140127
  Serious: Yes (Other)
  Sender: FDA-Public Use
  Company Number: CA-ABBOTT-12P-028-1018957-00

PATIENT
  Sex: Female
  Weight: 57.2 kg

DRUGS (2)
  1. HUMIRA [Suspect]
     Indication: CROHN^S DISEASE
     Route: 058
     Dates: start: 20110630
  2. HUMIRA [Suspect]
     Route: 058
     Dates: start: 20110215

REACTIONS (6)
  - Breast enlargement [Unknown]
  - Postoperative wound infection [Recovered/Resolved]
  - Injection site bruising [Not Recovered/Not Resolved]
  - Musculoskeletal pain [Unknown]
  - Back pain [Unknown]
  - Wound [Recovering/Resolving]
